FAERS Safety Report 14496819 (Version 3)
Quarter: 2018Q1

REPORT INFORMATION
  Report Type: Spontaneous
  Country: US (occurrence: US)
  Receive Date: 20180207
  Receipt Date: 20180329
  Transmission Date: 20180509
  Serious: No
  Sender: FDA-Public Use
  Company Number: US-PFIZER INC-2018052197

PATIENT
  Age: 59 Year
  Sex: Female
  Weight: 90.72 kg

DRUGS (4)
  1. ADVIL LIQUI-GELS [Suspect]
     Active Substance: IBUPROFEN
     Indication: MYALGIA
  2. ADVIL LIQUI-GELS [Suspect]
     Active Substance: IBUPROFEN
     Indication: PAIN
     Dosage: 600MG-800MG (3-4LIQUIGELS), AS NEEDED
     Route: 048
     Dates: end: 201801
  3. ADVIL LIQUI-GELS [Suspect]
     Active Substance: IBUPROFEN
     Indication: ARTHRALGIA
  4. ARMOUR THYROID [Concomitant]
     Active Substance: THYROID, PORCINE
     Indication: THYROIDITIS
     Dosage: 60 MG, 1X/DAY
     Route: 048
     Dates: start: 2008

REACTIONS (3)
  - Drug ineffective [Recovered/Resolved]
  - Gluten sensitivity [Unknown]
  - Intentional product use issue [Unknown]

NARRATIVE: CASE EVENT DATE: 201710
